FAERS Safety Report 7796383-5 (Version None)
Quarter: 2011Q4

REPORT INFORMATION
  Report Type: 
  Country: None (occurrence: None)
  Receive Date: 20111005
  Receipt Date: 20110927
  Transmission Date: 20120403
  Serious: No
  Sender: FDA-Public Use
  Company Number: US-BIOGENIDEC-2011BI016985

PATIENT
  Sex: Female

DRUGS (5)
  1. ANTIBIOTICS [Concomitant]
     Indication: PRODUCT USED FOR UNKNOWN INDICATION
  2. TYSABRI [Suspect]
     Route: 042
     Dates: start: 20050109
  3. ANTIBIOTICS [Concomitant]
     Indication: INFECTION
  4. TYSABRI [Suspect]
     Indication: MULTIPLE SCLEROSIS
     Route: 042
     Dates: start: 20080821, end: 20110323
  5. ANTIBIOTICS [Concomitant]
     Indication: RASH

REACTIONS (19)
  - HYPOAESTHESIA [None]
  - RASH [None]
  - CHEST PAIN [None]
  - MULTIPLE SCLEROSIS RELAPSE [None]
  - FEELING ABNORMAL [None]
  - INJECTION SITE MASS [None]
  - BRONCHITIS [None]
  - DIZZINESS [None]
  - FATIGUE [None]
  - SENSORY DISTURBANCE [None]
  - INSOMNIA [None]
  - POSTOPERATIVE WOUND INFECTION [None]
  - COUGH [None]
  - PNEUMONIA PRIMARY ATYPICAL [None]
  - EAR INFECTION [None]
  - SINUS DISORDER [None]
  - INFECTION [None]
  - ASTHMA [None]
  - RASH GENERALISED [None]
